FAERS Safety Report 20974518 (Version 1)
Quarter: 2022Q2

REPORT INFORMATION
  Report Type: Spontaneous
  Country: US (occurrence: None)
  Receive Date: 20220616
  Receipt Date: 20220616
  Transmission Date: 20220721
  Serious: Yes (Hospitalization)
  Sender: FDA-Public Use
  Company Number: None

PATIENT
  Age: 68 Year
  Sex: Female
  Weight: 85.28 kg

DRUGS (10)
  1. TEMOZOLOMIDE [Suspect]
     Active Substance: TEMOZOLOMIDE
     Indication: Brain neoplasm malignant
     Dosage: FREQUENCY : DAILY;?
     Route: 048
     Dates: start: 202206
  2. BACTRIM DS [Concomitant]
  3. DECADRON [Concomitant]
     Active Substance: DEXAMETHASONE
  4. DILTIAZEM [Concomitant]
  5. HYDROCHLOROTHIAZIDE [Concomitant]
  6. KEPPRA [Concomitant]
  7. LISINOPRIL [Concomitant]
  8. LORAZEPAM [Concomitant]
  9. OMEPRAZOLE [Concomitant]
  10. ZOFRAN [Concomitant]
     Active Substance: ONDANSETRON HYDROCHLORIDE

REACTIONS (1)
  - Perforated ulcer [None]
